FAERS Safety Report 14745610 (Version 1)
Quarter: 2018Q2

REPORT INFORMATION
  Report Type: Spontaneous
  Country: JP (occurrence: JP)
  Receive Date: 20180411
  Receipt Date: 20180411
  Transmission Date: 20180711
  Serious: Yes (Death, Other)
  Sender: FDA-Public Use
  Company Number: JP-MYLANLABS-2018M1024107

PATIENT
  Age: 74 Year
  Sex: Male

DRUGS (2)
  1. IFOSFAMIDE. [Suspect]
     Active Substance: IFOSFAMIDE
     Dosage: 3G FOR FOUR DAYS EVERY 4 WEEKS
     Route: 042
  2. IFOSFAMIDE. [Suspect]
     Active Substance: IFOSFAMIDE
     Indication: UNDIFFERENTIATED SARCOMA
     Dosage: 3.5G FOR FOUR DAYS EVERY 4 WEEKS
     Route: 042

REACTIONS (4)
  - Interstitial lung disease [Fatal]
  - Recall phenomenon [Fatal]
  - Thrombocytopenia [Unknown]
  - Respiratory failure [Fatal]
